FAERS Safety Report 8486196-3 (Version None)
Quarter: 2012Q3

REPORT INFORMATION
  Report Type: 
  Country: None (occurrence: None)
  Receive Date: 20120703
  Receipt Date: 20120629
  Transmission Date: 20120928
  Serious: Yes (Death, Other)
  Sender: FDA-Public Use
  Company Number: CA-ABBOTT-12P-028-0911721-00

PATIENT
  Sex: Male
  Weight: 77.18 kg

DRUGS (1)
  1. LUPRON DEPOT [Suspect]
     Indication: PROSTATE CANCER
     Route: 058
     Dates: start: 20100721, end: 20120314

REACTIONS (7)
  - MOBILITY DECREASED [None]
  - WEIGHT DECREASED [None]
  - EPISTAXIS [None]
  - ASTHENIA [None]
  - PROSTATE CANCER [None]
  - SKIN LESION [None]
  - PROSTATE CANCER METASTATIC [None]
